FAERS Safety Report 20020853 (Version 1)
Quarter: 2021Q4

REPORT INFORMATION
  Report Type: Report from Study
  Country: IT (occurrence: IT)
  Receive Date: 20211101
  Receipt Date: 20211101
  Transmission Date: 20220304
  Serious: Yes (Life-Threatening)
  Sender: FDA-Public Use
  Company Number: None

PATIENT
  Age: 13 Year
  Sex: Female

DRUGS (3)
  1. DELORAZEPAM [Suspect]
     Active Substance: DELORAZEPAM
     Indication: Product used for unknown indication
     Route: 048
     Dates: start: 20210602, end: 20210602
  2. QUETIAPINE [Suspect]
     Active Substance: QUETIAPINE
     Indication: Product used for unknown indication
     Dosage: 4 GRAM, ONCE
     Route: 048
     Dates: start: 20210602, end: 20210602
  3. LITHIUM [Suspect]
     Active Substance: LITHIUM
     Indication: Product used for unknown indication
     Dosage: 1.66 GRAM, ONCE
     Route: 048
     Dates: start: 20210602, end: 20210602

REACTIONS (4)
  - Sopor [Not Recovered/Not Resolved]
  - Miosis [Not Recovered/Not Resolved]
  - Drug abuse [Not Recovered/Not Resolved]
  - Suicide attempt [Not Recovered/Not Resolved]

NARRATIVE: CASE EVENT DATE: 20210602
